FAERS Safety Report 8773292 (Version 1)
Quarter: 2012Q4

REPORT INFORMATION
  Report Type: 
  Country: DK (occurrence: DK)
  Receive Date: 20120907
  Receipt Date: 20120907
  Transmission Date: 20130627
  Serious: Yes (Death)
  Sender: FDA-Public Use
  Company Number: DK-ROCHE-1108736

PATIENT
  Sex: Female
  Weight: 75 kg

DRUGS (10)
  1. RIVOTRIL [Suspect]
     Indication: PRODUCT USED FOR UNKNOWN INDICATION
     Route: 065
  2. CITALOPRAM [Suspect]
     Indication: PRODUCT USED FOR UNKNOWN INDICATION
  3. SEROQUEL [Suspect]
     Indication: SCHIZOPHRENIA, PARANOID TYPE
     Route: 065
  4. TRAMADOL [Suspect]
     Indication: PAIN
     Dosage: Drug reported as Dolol Retard UNO
     Route: 065
  5. IBUPROFEN [Concomitant]
     Route: 065
  6. SALICYLSAURE [Concomitant]
     Route: 065
  7. OMEPRAZOLE [Concomitant]
     Indication: ULCER
     Route: 065
  8. BIPERIDEN [Concomitant]
     Route: 065
  9. CODEIN + ASPIRIN [Concomitant]
     Route: 065
  10. ARIPIPRAZOL [Concomitant]
     Route: 065

REACTIONS (1)
  - Toxicity to various agents [Fatal]
